FAERS Safety Report 23470165 (Version 1)
Quarter: 2024Q1

REPORT INFORMATION
  Report Type: Report from Study
  Country: RU (occurrence: RU)
  Receive Date: 20240202
  Receipt Date: 20240202
  Transmission Date: 20240409
  Serious: Yes (Other)
  Sender: FDA-Public Use
  Company Number: RU-ALLERGAN-2210743US

PATIENT

DRUGS (1)
  1. DEXAMETHASONE [Suspect]
     Active Substance: DEXAMETHASONE
     Indication: Cystoid macular oedema
     Dosage: TIME INTERVAL: AS NECESSARY
     Route: 031

REACTIONS (6)
  - Lenticular opacities [Recovered/Resolved]
  - Cystoid macular oedema [Recovered/Resolved]
  - Condition aggravated [Recovered/Resolved]
  - Off label use [Unknown]
  - Intraocular pressure increased [Recovered/Resolved]
  - Drug ineffective [Unknown]
